FAERS Safety Report 6336071-5 (Version None)
Quarter: 2009Q3

REPORT INFORMATION
  Report Type: 
  Country: None (occurrence: None)
  Receive Date: 20090828
  Receipt Date: 20090820
  Transmission Date: 20100115
  Serious: Yes (Other)
  Sender: FDA-Public Use
  Company Number: SPV1-2009-01707

PATIENT
  Age: 11 Year
  Sex: Male

DRUGS (2)
  1. DEXTROAMPHETAMINE(DEXTROAMPHETAMINE) [Suspect]
     Indication: ATTENTION DEFICIT/HYPERACTIVITY DISORDER
  2. CONCERTA [Suspect]
     Indication: ATTENTION DEFICIT/HYPERACTIVITY DISORDER

REACTIONS (3)
  - DECREASED APPETITE [None]
  - GROWTH RETARDATION [None]
  - TIC [None]
